FAERS Safety Report 12756276 (Version 1)
Quarter: 2016Q3

REPORT INFORMATION
  Report Type: Spontaneous
  Country: IT (occurrence: LV)
  Receive Date: 20160916
  Receipt Date: 20160916
  Transmission Date: 20161109
  Serious: Yes (Other)
  Sender: FDA-Public Use
  Company Number: LV-FRI-1000087525

PATIENT
  Age: 53 Year
  Sex: Female
  Weight: 137 kg

DRUGS (5)
  1. ENAP [Concomitant]
     Active Substance: ENALAPRIL
     Indication: HYPERTENSION
     Dosage: 5 MG
     Dates: start: 2014
  2. L-THYROXIN [Concomitant]
     Active Substance: LEVOTHYROXINE SODIUM
     Indication: THYROID HORMONE REPLACEMENT THERAPY
     Dosage: 50 MCG
     Dates: start: 2006
  3. CARDACE [Concomitant]
     Active Substance: RAMIPRIL
     Indication: HYPERTENSION
     Dosage: 5 MG
     Dates: start: 2014, end: 20160912
  4. NEBIVOLOL. [Suspect]
     Active Substance: NEBIVOLOL
     Indication: HYPERTENSION
     Dosage: 1.25 MG
     Route: 048
     Dates: start: 2014
  5. NEBIVOLOL. [Suspect]
     Active Substance: NEBIVOLOL
     Dosage: 2.5 MG
     Route: 048
     Dates: end: 2014

REACTIONS (8)
  - Heart rate decreased [Recovered/Resolved]
  - Pyrexia [Unknown]
  - Heart rate increased [Unknown]
  - Vision blurred [Unknown]
  - Palpitations [Unknown]
  - Tremor [Unknown]
  - Hypertension [Unknown]
  - Intentional underdose [Unknown]

NARRATIVE: CASE EVENT DATE: 2014
